FAERS Safety Report 9164193 (Version 2)
Quarter: 2013Q2

REPORT INFORMATION
  Report Type: Spontaneous
  Country: BR (occurrence: None)
  Receive Date: 20130226
  Receipt Date: 20130426
  Transmission Date: 20140414
  Serious: Yes (Other)
  Sender: FDA-Public Use
  Company Number: ENT 2013-0037

PATIENT
  Sex: Female

DRUGS (1)
  1. COMTAN (ENTACAPONE) [Suspect]
     Dosage: 2 PACKAGES A MONTH (200 MG)

REACTIONS (2)
  - Parkinson^s disease [None]
  - No adverse event [None]
